FAERS Safety Report 9675876 (Version 2)
Quarter: 2014Q1

REPORT INFORMATION
  Report Type: Spontaneous
  Country: JP (occurrence: JP)
  Receive Date: 20131107
  Receipt Date: 20140312
  Transmission Date: 20141002
  Serious: Yes (Other)
  Sender: FDA-Public Use
  Company Number: JP-GLAXOSMITHKLINE-B0939895A

PATIENT
  Age: 88 Year
  Sex: Female
  Weight: 35 kg

DRUGS (1)
  1. VALTREX [Suspect]
     Indication: PRODUCT USED FOR UNKNOWN INDICATION
     Dosage: 250MG PER DAY
     Route: 048
     Dates: start: 20131022, end: 20131026

REACTIONS (4)
  - Toxic encephalopathy [Recovered/Resolved]
  - Headache [Recovered/Resolved]
  - Abdominal pain [Recovered/Resolved]
  - Dysarthria [Recovered/Resolved]
